FAERS Safety Report 8920691 (Version 3)
Quarter: 2013Q4

REPORT INFORMATION
  Report Type: Spontaneous
  Country: GB (occurrence: GB)
  Receive Date: 20121122
  Receipt Date: 20131126
  Transmission Date: 20140711
  Serious: Yes (Other)
  Sender: FDA-Public Use
  Company Number: GB-009507513-1211GBR006118

PATIENT
  Sex: 0

DRUGS (1)
  1. SINGULAIR [Suspect]

REACTIONS (1)
  - Adverse event [Unknown]
